FAERS Safety Report 21026027 (Version 1)
Quarter: 2022Q2

REPORT INFORMATION
  Report Type: Spontaneous
  Country: FR (occurrence: FR)
  Receive Date: 20220630
  Receipt Date: 20220630
  Transmission Date: 20220721
  Serious: Yes (Hospitalization)
  Sender: FDA-Public Use
  Company Number: None

PATIENT
  Age: 67 Year
  Sex: Male
  Weight: 76.6 kg

DRUGS (12)
  1. GENTAMICIN [Suspect]
     Active Substance: GENTAMICIN
     Indication: Streptococcal endocarditis
     Route: 065
     Dates: start: 20220429, end: 20220502
  2. AMOXICILLIN [Suspect]
     Active Substance: AMOXICILLIN
     Indication: Streptococcal endocarditis
     Route: 065
     Dates: start: 20220523, end: 20220604
  3. DAPTOMYCIN [Suspect]
     Active Substance: DAPTOMYCIN
     Indication: Streptococcal endocarditis
     Route: 065
     Dates: start: 20220502, end: 20220516
  4. CEFTRIAXONE SODIUM [Suspect]
     Active Substance: CEFTRIAXONE SODIUM
     Indication: Streptococcal endocarditis
     Route: 065
     Dates: start: 20220429, end: 20220502
  5. CILASTATIN SODIUM\IMIPENEM [Suspect]
     Active Substance: CILASTATIN SODIUM\IMIPENEM
     Indication: Streptococcal endocarditis
     Route: 065
     Dates: start: 20220502, end: 20220523
  6. FUROSEMIDE [Concomitant]
     Active Substance: FUROSEMIDE
     Indication: Congestive cardiomyopathy
  7. CORDARONE [Concomitant]
     Active Substance: AMIODARONE HYDROCHLORIDE
     Indication: Product used for unknown indication
  8. CANDESARTAN CILEXETIL [Concomitant]
     Active Substance: CANDESARTAN CILEXETIL
     Indication: Hypertension
     Dates: start: 202204
  9. PREVISCAN [Concomitant]
     Indication: Thrombosis prophylaxis
     Dosage: BREAKABLE TABLET
  10. BISOPROLOL FUMARATE [Concomitant]
     Active Substance: BISOPROLOL FUMARATE
     Indication: Congestive cardiomyopathy
  11. INSPRA [Concomitant]
     Active Substance: EPLERENONE
     Indication: Congestive cardiomyopathy
  12. LOXEN [Concomitant]
     Indication: Hypertension

REACTIONS (1)
  - Acute kidney injury [Recovering/Resolving]

NARRATIVE: CASE EVENT DATE: 20220531
